FAERS Safety Report 15729526 (Version 2)
Quarter: 2019Q1

REPORT INFORMATION
  Report Type: Spontaneous
  Country: US (occurrence: US)
  Receive Date: 20181217
  Receipt Date: 20190103
  Transmission Date: 20190417
  Serious: No
  Sender: FDA-Public Use
  Company Number: US-GLAXOSMITHKLINE-US2018GSK213698

PATIENT
  Sex: Female

DRUGS (1)
  1. BENLYSTA [Suspect]
     Active Substance: BELIMUMAB
     Indication: SYSTEMIC LUPUS ERYTHEMATOSUS

REACTIONS (8)
  - Nausea [Unknown]
  - Fatigue [Unknown]
  - Constipation [Unknown]
  - Influenza like illness [Unknown]
  - Drug ineffective [Unknown]
  - Pain [Unknown]
  - Depression [Unknown]
  - Asthenia [Unknown]
